FAERS Safety Report 6722538-4 (Version None)
Quarter: 2010Q2

REPORT INFORMATION
  Report Type: 
  Country: None (occurrence: None)
  Receive Date: 20100512
  Receipt Date: 20100507
  Transmission Date: 20101027
  Serious: Yes (Other)
  Sender: FDA-Public Use
  Company Number: US-BAYER-201014458BCC

PATIENT
  Age: 81 Year
  Sex: Female
  Weight: 75 kg

DRUGS (11)
  1. PHILLIP'S LIQUID GEL [Suspect]
     Indication: CONSTIPATION PROPHYLAXIS
     Dosage: TOTAL DAILY DOSE: 1 DF  UNIT DOSE: 1 DF
     Route: 048
     Dates: start: 20100402, end: 20100402
  2. PHILLIP'S LIQUID GEL [Suspect]
     Dosage: TOTAL DAILY DOSE: 1 DF  UNIT DOSE: 1 DF
     Route: 048
     Dates: start: 20100415, end: 20100416
  3. PRAVASTATIN [Concomitant]
     Dosage: TOTAL DAILY DOSE: 20 MG  UNIT DOSE: 20 MG
     Route: 065
  4. POTASSIUM [Concomitant]
     Dosage: TOTAL DAILY DOSE: 10 MG  UNIT DOSE: 10 MG
     Route: 065
  5. SOTALOL HCL [Concomitant]
     Dosage: TOTAL DAILY DOSE: 160 MG  UNIT DOSE: 80 MG
     Route: 065
  6. HYDROCHLOROTHIAZIDE [Concomitant]
     Dosage: TOTAL DAILY DOSE: 25 MG  UNIT DOSE: 25 MG
     Route: 065
  7. MICARDIS [Concomitant]
     Route: 065
  8. COUMADIN [Concomitant]
     Route: 065
  9. METHIMAZOLE [Concomitant]
     Route: 065
  10. VITAMIN C [Concomitant]
     Route: 065
  11. CALCIUM [Concomitant]
     Route: 065

REACTIONS (1)
  - BLOOD URINE PRESENT [None]
